FAERS Safety Report 6896774-0 (Version None)
Quarter: 2010Q3

REPORT INFORMATION
  Report Type: 
  Country: None (occurrence: None)
  Receive Date: 20100802
  Receipt Date: 20070314
  Transmission Date: 20110219
  Serious: No
  Sender: FDA-Public Use
  Company Number: US-PFIZER INC-2007007376

PATIENT
  Sex: Female
  Weight: 86.18 kg

DRUGS (20)
  1. LYRICA [Suspect]
     Indication: DIABETIC NEUROPATHY
     Dates: start: 20070122
  2. HYDROCODONE BITARTRATE [Concomitant]
     Dates: start: 20070109
  3. TIKOSYN [Concomitant]
     Dates: start: 20050404
  4. METOPROLOL [Concomitant]
     Dates: start: 20010101
  5. GLYBURIDE [Concomitant]
     Dates: start: 20050404
  6. NOVOLIN 70/30 [Concomitant]
     Dates: start: 20040810
  7. HUMALOG [Concomitant]
     Dates: start: 20060831
  8. LASIX [Concomitant]
     Dates: start: 19920101
  9. ALDACTONE [Concomitant]
     Dates: start: 20060119
  10. IRON [Concomitant]
     Dates: start: 20060701
  11. WARFARIN SODIUM [Concomitant]
     Dates: start: 20050101
  12. ADVAIR DISKUS 100/50 [Concomitant]
     Route: 055
     Dates: start: 20051013
  13. FUROSEMIDE [Concomitant]
     Dates: start: 20051230
  14. GABAPENTIN [Concomitant]
     Dates: start: 20060831
  15. HALDOL [Concomitant]
     Dates: start: 20050404
  16. KLOR-CON [Concomitant]
     Dates: start: 20051230
  17. LOPRESSOR [Concomitant]
     Dates: start: 20051104
  18. LORTAB [Concomitant]
     Dates: start: 20060720
  19. MIRAPEX [Concomitant]
     Dates: start: 20060731
  20. XOPENEX [Concomitant]
     Dates: start: 20050404

REACTIONS (3)
  - ARTHRALGIA [None]
  - DRUG INEFFECTIVE [None]
  - PAIN IN EXTREMITY [None]
